FAERS Safety Report 5884027-9 (Version None)
Quarter: 2008Q3

REPORT INFORMATION
  Report Type: 
  Country: None (occurrence: None)
  Receive Date: 20080915
  Receipt Date: 20080905
  Transmission Date: 20090109
  Serious: Yes (Other)
  Sender: FDA-Public Use
  Company Number: US-JNJFOC-20080901954

PATIENT
  Age: 22 Year
  Sex: Female
  Weight: 58.97 kg

DRUGS (2)
  1. ELMIRON [Suspect]
     Route: 048
  2. ELMIRON [Suspect]
     Indication: CYSTITIS INTERSTITIAL
     Route: 048

REACTIONS (2)
  - ALOPECIA [None]
  - OVARIAN CYST RUPTURED [None]
